FAERS Safety Report 18172240 (Version 1)
Quarter: 2020Q3

REPORT INFORMATION
  Report Type: Spontaneous
  Country: IT (occurrence: IT)
  Receive Date: 20200819
  Receipt Date: 20200819
  Transmission Date: 20201103
  Serious: Yes (Other)
  Sender: FDA-Public Use
  Company Number: IT-BIOCODEX SA-202001078

PATIENT

DRUGS (1)
  1. DIACOMIT [Suspect]
     Active Substance: STIRIPENTOL
     Indication: SEVERE MYOCLONIC EPILEPSY OF INFANCY
     Dosage: UNK
     Route: 065

REACTIONS (2)
  - Seizure [Unknown]
  - Vomiting [Unknown]
